FAERS Safety Report 4750952-5 (Version None)
Quarter: 2005Q3

REPORT INFORMATION
  Report Type: 
  Country: None (occurrence: None)
  Receive Date: 20050822
  Receipt Date: 20050812
  Transmission Date: 20060218
  Serious: Yes (Hospitalization)
  Sender: FDA-Public Use
  Company Number: KII-2005-0018046

PATIENT
  Age: 42 Year
  Sex: Female

DRUGS (5)
  1. HYDROMORPHONE HCL [Suspect]
     Dosage: ORAL
     Route: 048
  2. CARISOPRODOL (CARISOPRODOL) [Suspect]
     Dosage: ORAL
     Route: 048
  3. ANTIHISTAMINES FOR SYSTEMIC USE () [Suspect]
     Dosage: ORAL
     Route: 048
  4. SSRI () [Suspect]
     Dosage: ORAL
     Route: 048
  5. BENZODIAZEPINE DERIVATIVES () [Suspect]
     Dosage: ORAL
     Route: 048

REACTIONS (6)
  - ASTHENIA [None]
  - CONTUSION [None]
  - LOSS OF CONSCIOUSNESS [None]
  - MOBILITY DECREASED [None]
  - MULTIPLE DRUG OVERDOSE [None]
  - PAIN IN EXTREMITY [None]
